FAERS Safety Report 7323160-1 (Version None)
Quarter: 2011Q1

REPORT INFORMATION
  Report Type: 
  Country: None (occurrence: None)
  Receive Date: 20110216
  Receipt Date: 20110201
  Transmission Date: 20110831
  Serious: Yes (Hospitalization, Other)
  Sender: FDA-Public Use
  Company Number: UTC-004110

PATIENT
  Age: 62 Year
  Sex: Female

DRUGS (5)
  1. REVATIO [Concomitant]
  2. ANTIHYPERTENSIVE MEDICATIONS (ANTIHYPERTENSIVES) [Concomitant]
  3. TYVASO [Suspect]
     Indication: PULMONARY ARTERIAL HYPERTENSION
     Dosage: 216 MCG (54 MCG,4 IN 1 D),INHALATION
     Route: 055
     Dates: start: 20091111
  4. TRACLEER [Concomitant]
  5. DIURETICS (DIURETICS) [Concomitant]

REACTIONS (6)
  - ASTHENIA [None]
  - HYPOTENSION [None]
  - DIZZINESS [None]
  - PNEUMONIA [None]
  - ASTHMA [None]
  - FATIGUE [None]
